FAERS Safety Report 6727353-3 (Version None)
Quarter: 2010Q2

REPORT INFORMATION
  Report Type: 
  Country: None (occurrence: None)
  Receive Date: 20100517
  Receipt Date: 20100504
  Transmission Date: 20101027
  Serious: Yes (Hospitalization)
  Sender: FDA-Public Use
  Company Number: PHHY2009BR57862

PATIENT
  Age: 78 Year
  Sex: Male

DRUGS (6)
  1. DIOVAN HCT [Suspect]
     Dosage: 160/12.5MG 1 TABLET DAILY
     Route: 048
  2. OLCADIL [Suspect]
     Dosage: 1 MG, QD
     Route: 048
  3. OLCADIL [Suspect]
     Dosage: 2 MG, QD
  4. OMEPRAZOLE [Concomitant]
     Indication: GASTRIC HAEMORRHAGE
     Dosage: 20 MG, QD
     Route: 048
  5. OMEPRAZOLE [Concomitant]
     Dosage: 10 MG, QD
     Route: 048
  6. MOTILIUM [Concomitant]
     Indication: GASTROOESOPHAGEAL REFLUX DISEASE
     Dosage: 10 MG, PRN

REACTIONS (1)
  - CARDIAC OPERATION [None]
